FAERS Safety Report 4921854-6 (Version None)
Quarter: 2006Q1

REPORT INFORMATION
  Report Type: 
  Country: None (occurrence: None)
  Receive Date: 20060223
  Receipt Date: 20060223
  Transmission Date: 20060701
  Serious: Yes (Hospitalization, Disabling)
  Sender: FDA-Public Use
  Company Number: None

PATIENT
  Sex: Male
  Weight: 76.7 kg

DRUGS (2)
  1. LITHIUM CARBONATE [Suspect]
     Indication: BIPOLAR DISORDER
     Dosage: 300 MG  QHS  PO
     Route: 048
     Dates: start: 20010401, end: 20050602
  2. LITHIUM CARBONATE [Suspect]
     Indication: BIPOLAR DISORDER
     Dosage: 450 MG  BID  PO
     Route: 048
     Dates: start: 20010401, end: 20050602

REACTIONS (3)
  - AGITATION [None]
  - CHOREA [None]
  - DRUG INTERACTION [None]
